FAERS Safety Report 10085687 (Version 3)
Quarter: 2015Q4

REPORT INFORMATION
  Report Type: Report from Study
  Country: US (occurrence: US)
  Receive Date: 20140418
  Receipt Date: 20151119
  Transmission Date: 20160304
  Serious: Yes (Hospitalization)
  Sender: FDA-Public Use
  Company Number: US-ROCHE-1374398

PATIENT
  Sex: Female
  Weight: 74 kg

DRUGS (17)
  1. AQUAPHOR (UNITED STATES) [Concomitant]
  2. QUERCETIN [Concomitant]
     Active Substance: QUERCETIN
  3. BETAMETHASONE. [Concomitant]
     Active Substance: BETAMETHASONE
     Route: 065
  4. VERAMYST [Concomitant]
     Active Substance: FLUTICASONE FUROATE
  5. HYDROCHLOROTHIAZIDE. [Concomitant]
     Active Substance: HYDROCHLOROTHIAZIDE
  6. BIOTIN [Concomitant]
     Active Substance: BIOTIN
  7. PRILOSEC [Concomitant]
     Active Substance: OMEPRAZOLE MAGNESIUM
  8. CITALOPRAM [Concomitant]
     Active Substance: CITALOPRAM HYDROBROMIDE
  9. TRIAMCINOLONE [Concomitant]
     Active Substance: TRIAMCINOLONE
  10. ALBUTEROL. [Concomitant]
     Active Substance: ALBUTEROL
     Route: 065
  11. ALBUTEROL. [Concomitant]
     Active Substance: ALBUTEROL
     Dosage: 2 PUFFS TWICE A DAY, 10-15 TIMES A MONTH
     Route: 065
  12. NASONEX [Concomitant]
     Active Substance: MOMETASONE FUROATE
  13. CELLCEPT [Suspect]
     Active Substance: MYCOPHENOLATE MOFETIL\MYCOPHENOLATE MOFETIL HYDROCHLORIDE
     Indication: DERMATITIS ATOPIC
     Route: 065
  14. XOLAIR [Suspect]
     Active Substance: OMALIZUMAB
     Indication: ASTHMA
  15. XOLAIR [Suspect]
     Active Substance: OMALIZUMAB
     Indication: IDIOPATHIC URTICARIA
     Dosage: 05/MAR/2014
     Route: 058
  16. NASACORT [Concomitant]
     Active Substance: TRIAMCINOLONE ACETONIDE
  17. ZYRTEC [Concomitant]
     Active Substance: CETIRIZINE HYDROCHLORIDE

REACTIONS (5)
  - Angioedema [Unknown]
  - Fatigue [Unknown]
  - Joint swelling [Unknown]
  - Weight increased [Unknown]
  - Anaphylactic reaction [Unknown]
